FAERS Safety Report 6082346-7 (Version None)
Quarter: 2009Q1

REPORT INFORMATION
  Report Type: 
  Country: None (occurrence: None)
  Receive Date: 20090218
  Receipt Date: 20090209
  Transmission Date: 20090719
  Serious: Yes (Life-Threatening, Other)
  Sender: FDA-Public Use
  Company Number: JP-ABBOTT-09P-087-0502551-00

PATIENT
  Sex: Male

DRUGS (16)
  1. AKINETON [Suspect]
     Indication: AKATHISIA
     Route: 048
     Dates: start: 20081021, end: 20081029
  2. AKINETON [Suspect]
     Route: 048
     Dates: start: 20070506, end: 20081020
  3. LONASEN [Suspect]
     Indication: SCHIZOPHRENIA
     Route: 048
     Dates: start: 20080909, end: 20081029
  4. LONASEN [Suspect]
     Indication: HALLUCINATION, AUDITORY
     Route: 048
     Dates: start: 20080701, end: 20080908
  5. RISPERDAL [Concomitant]
     Indication: SCHIZOPHRENIA
     Route: 048
     Dates: start: 20070216, end: 20070302
  6. RISPERDAL [Concomitant]
     Indication: HALLUCINATION, AUDITORY
     Route: 048
     Dates: start: 20070216, end: 20070302
  7. ZYPREXA [Concomitant]
     Indication: SCHIZOPHRENIA
     Route: 048
     Dates: start: 20070302, end: 20070312
  8. ZYPREXA [Concomitant]
     Indication: HALLUCINATION, AUDITORY
     Route: 048
     Dates: start: 20070313, end: 20070405
  9. LULLAN [Concomitant]
     Indication: SCHIZOPHRENIA
     Route: 048
     Dates: start: 20070405, end: 20070510
  10. LULLAN [Concomitant]
     Indication: HALLUCINATION, AUDITORY
  11. ABILIFY [Concomitant]
     Indication: SCHIZOPHRENIA
     Route: 048
     Dates: start: 20070510, end: 20070618
  12. ABILIFY [Concomitant]
     Indication: HALLUCINATION, AUDITORY
     Route: 048
     Dates: start: 20070619, end: 20071225
  13. ABILIFY [Concomitant]
     Route: 048
     Dates: start: 20071225, end: 20080108
  14. SEROQUEL [Concomitant]
     Indication: INSOMNIA
     Route: 048
     Dates: start: 20070619, end: 20071211
  15. DOGMATYL [Concomitant]
     Indication: ANOREXIA
     Route: 048
     Dates: start: 20080909, end: 20080922
  16. CONTOMIN [Concomitant]
     Indication: INSOMNIA
     Route: 048
     Dates: start: 20080909

REACTIONS (11)
  - DEHYDRATION [None]
  - DEPRESSED LEVEL OF CONSCIOUSNESS [None]
  - FALL [None]
  - HYPOPHAGIA [None]
  - MALAISE [None]
  - METABOLIC ACIDOSIS [None]
  - MOBILITY DECREASED [None]
  - PAIN [None]
  - PYREXIA [None]
  - RHABDOMYOLYSIS [None]
  - URINARY RETENTION [None]
